FAERS Safety Report 8837554 (Version 2)
Quarter: 2012Q4

REPORT INFORMATION
  Report Type: 
  Country: JP (occurrence: JP)
  Receive Date: 20121012
  Receipt Date: 20121108
  Transmission Date: 20130627
  Serious: Yes (Other)
  Sender: FDA-Public Use
  Company Number: JP-JNJFOC-20121004345

PATIENT
  Age: 59 Year
  Sex: Female

DRUGS (4)
  1. REMICADE [Suspect]
     Indication: COLITIS ULCERATIVE
     Dosage: 8th dose
     Route: 042
     Dates: start: 20120807
  2. REMICADE [Suspect]
     Indication: COLITIS ULCERATIVE
     Dosage: 1st dose
     Route: 042
     Dates: start: 20110920
  3. REMICADE [Suspect]
     Indication: COLITIS ULCERATIVE
     Dosage: 9th dose
     Route: 042
     Dates: start: 20121002
  4. SAXIZON [Concomitant]
     Indication: PREMEDICATION
     Route: 065
     Dates: start: 20121002, end: 20121002

REACTIONS (4)
  - Colour blindness [Unknown]
  - Vitreous floaters [Recovered/Resolved]
  - Infusion related reaction [Recovered/Resolved]
  - Visual impairment [Recovered/Resolved]
